FAERS Safety Report 12244293 (Version 1)
Quarter: 2016Q2

REPORT INFORMATION
  Report Type: Report from Study
  Country: BR (occurrence: BR)
  Receive Date: 20160407
  Receipt Date: 20160407
  Transmission Date: 20160815
  Serious: Yes (Death)
  Sender: FDA-Public Use
  Company Number: BR-ROCHE-1288383

PATIENT
  Sex: Male
  Weight: 61 kg

DRUGS (9)
  1. ROHYPNOL [Concomitant]
     Active Substance: FLUNITRAZEPAM
  2. MABTHERA [Suspect]
     Active Substance: RITUXIMAB
     Route: 042
     Dates: start: 201311
  3. FOLIC ACID. [Concomitant]
     Active Substance: FOLIC ACID
  4. PLAVIX [Concomitant]
     Active Substance: CLOPIDOGREL BISULFATE
  5. MABTHERA [Suspect]
     Active Substance: RITUXIMAB
     Indication: RHEUMATOID ARTHRITIS
     Route: 042
     Dates: start: 201302
  6. ACTEMRA [Suspect]
     Active Substance: TOCILIZUMAB
     Indication: RHEUMATOID ARTHRITIS
     Route: 042
     Dates: start: 20160204
  7. PREDNISONE. [Concomitant]
     Active Substance: PREDNISONE
  8. ARADOIS [Concomitant]
     Active Substance: LOSARTAN POTASSIUM
  9. VIVACOR (BRAZIL) [Concomitant]

REACTIONS (3)
  - Musculoskeletal pain [Recovering/Resolving]
  - Arthralgia [Recovering/Resolving]
  - Myocardial infarction [Fatal]
